FAERS Safety Report 23188297 (Version 4)
Quarter: 2024Q1

REPORT INFORMATION
  Report Type: Spontaneous
  Country: US (occurrence: US)
  Receive Date: 20231115
  Receipt Date: 20240220
  Transmission Date: 20240410
  Serious: Yes (Other)
  Sender: FDA-Public Use
  Company Number: US-PFIZER INC-PV202300183571

PATIENT
  Age: 74 Year
  Sex: Female

DRUGS (4)
  1. INLYTA [Suspect]
     Active Substance: AXITINIB
     Indication: Renal cancer
     Dosage: UNK
  2. INLYTA [Suspect]
     Active Substance: AXITINIB
     Dosage: 5 MG, 1X/DAY
  3. INLYTA [Suspect]
     Active Substance: AXITINIB
     Dosage: TAKING 3 MG BID (TWICE A DAY)
  4. INLYTA [Suspect]
     Active Substance: AXITINIB
     Dosage: TAKING 2 MG BID (TWICE A DAY)

REACTIONS (16)
  - Diarrhoea [Recovering/Resolving]
  - Abdominal pain upper [Unknown]
  - Off label use [Unknown]
  - Hypertension [Unknown]
  - Oral pain [Unknown]
  - Oropharyngeal pain [Unknown]
  - Pain in jaw [Unknown]
  - Headache [Unknown]
  - Dry mouth [Unknown]
  - Chills [Recovered/Resolved]
  - Urinary tract infection [Unknown]
  - Nausea [Unknown]
  - Tremor [Unknown]
  - Illness [Unknown]
  - Dehydration [Unknown]
  - Gastrointestinal disorder [Unknown]
